FAERS Safety Report 6521938-5 (Version None)
Quarter: 2009Q4

REPORT INFORMATION
  Report Type: 
  Country: None (occurrence: None)
  Receive Date: 20091229
  Receipt Date: 20091229
  Transmission Date: 20100525
  Serious: Yes (Other)
  Sender: FDA-Public Use
  Company Number: None

PATIENT
  Sex: Female

DRUGS (6)
  1. GENTAMICIN [Suspect]
     Indication: CHLAMYDIAL INFECTION
     Dosage: TOPICAL, ONCE
     Route: 061
     Dates: start: 20090926
  2. GENTAMICIN [Suspect]
     Indication: GONORRHOEA
     Dosage: TOPICAL, ONCE
     Route: 061
     Dates: start: 20090926
  3. GENTAMICIN [Suspect]
     Indication: PROPHYLAXIS
     Dosage: TOPICAL, ONCE
     Route: 061
     Dates: start: 20090926
  4. HEPATITIS B VACCINE [Concomitant]
  5. M.V.I. [Concomitant]
  6. PHYTONADOINE [Concomitant]

REACTIONS (4)
  - APPLICATION SITE DRYNESS [None]
  - APPLICATION SITE ERYTHEMA [None]
  - APPLICATION SITE REACTION [None]
  - APPLICATION SITE SCAB [None]
